FAERS Safety Report 7842411-8 (Version None)
Quarter: 2011Q4

REPORT INFORMATION
  Report Type: 
  Country: None (occurrence: None)
  Receive Date: 20111025
  Receipt Date: 20111018
  Transmission Date: 20120403
  Serious: Yes (Hospitalization, Other)
  Sender: FDA-Public Use
  Company Number: JP-PFIZER INC-2011206214

PATIENT
  Age: 56 Year
  Sex: Male

DRUGS (5)
  1. SULFASALAZINE [Suspect]
     Indication: COLITIS ULCERATIVE
     Dosage: 1000 MG, 3X/DAY
     Route: 048
     Dates: start: 20110825, end: 20110831
  2. TANNALBIN [Concomitant]
     Indication: COLITIS ULCERATIVE
     Dosage: 1 G, 3X/DAY
     Route: 048
     Dates: start: 20110421
  3. ASACOL [Concomitant]
     Indication: COLITIS ULCERATIVE
     Dosage: 800 MG, 3X/DAY
     Route: 048
     Dates: start: 20110623, end: 20110825
  4. LAC B [Concomitant]
     Indication: COLITIS ULCERATIVE
     Dosage: 1 G, 3X/DAY
     Route: 048
     Dates: start: 20110421
  5. ADSORBIN [Concomitant]
     Indication: COLITIS ULCERATIVE
     Dosage: 1 G, 3X/DAY
     Route: 048
     Dates: start: 20110421

REACTIONS (5)
  - WHITE BLOOD CELL COUNT INCREASED [None]
  - ERYTHEMA [None]
  - CONJUNCTIVAL HYPERAEMIA [None]
  - BODY TEMPERATURE INCREASED [None]
  - C-REACTIVE PROTEIN INCREASED [None]
